FAERS Safety Report 13583037 (Version 2)
Quarter: 2017Q3

REPORT INFORMATION
  Report Type: Spontaneous
  Country: US (occurrence: US)
  Receive Date: 20170525
  Receipt Date: 20170811
  Transmission Date: 20171127
  Serious: No
  Sender: FDA-Public Use
  Company Number: US-ACTELION-A-NJ2017-154421

PATIENT
  Age: 34 Year
  Sex: Female
  Weight: 97.51 kg

DRUGS (3)
  1. OPSUMIT [Suspect]
     Active Substance: MACITENTAN
     Indication: PULMONARY ARTERIAL HYPERTENSION
     Dosage: 10 MG, QD
     Route: 048
  2. REMODULIN [Concomitant]
     Active Substance: TREPROSTINIL
  3. SILDENAFIL. [Concomitant]
     Active Substance: SILDENAFIL

REACTIONS (10)
  - Nausea [Unknown]
  - Abdominal pain upper [Unknown]
  - Application site pruritus [Unknown]
  - Pain in extremity [Unknown]
  - Dyspnoea [Unknown]
  - Application site erythema [Unknown]
  - Application site oedema [Unknown]
  - Chest discomfort [Unknown]
  - Diarrhoea [Unknown]
  - Cough [Unknown]
